FAERS Safety Report 12168116 (Version 7)
Quarter: 2017Q1

REPORT INFORMATION
  Report Type: Report from Study
  Country: US (occurrence: US)
  Receive Date: 20160310
  Receipt Date: 20170106
  Transmission Date: 20170428
  Serious: Yes (Death, Hospitalization, Other)
  Sender: FDA-Public Use
  Company Number: US-ASTELLAS-2016US009030

PATIENT
  Age: 54 Year
  Sex: Female

DRUGS (14)
  1. ERLOTINIB [Suspect]
     Active Substance: ERLOTINIB
     Dosage: THERAPY REINTRODUCED
     Route: 048
     Dates: start: 20160229
  2. VITAMIN D3 [Concomitant]
     Active Substance: CHOLECALCIFEROL
     Indication: PRODUCT USED FOR UNKNOWN INDICATION
     Dosage: 2000 UNIT NOT REPORTED, UNKNOWN FREQ.
     Route: 065
  3. DEXAMETHASON                       /00016001/ [Concomitant]
     Active Substance: DEXAMETHASONE
     Indication: PRODUCT USED FOR UNKNOWN INDICATION
     Route: 065
  4. ERLOTINIB [Suspect]
     Active Substance: ERLOTINIB
     Indication: SPINAL MENINGIOMA MALIGNANT
     Dosage: 25 MG, TWICE WEEKLY (4 TABLETS ON SATURDAY AND SUNDAY EACH WEEK)
     Route: 048
     Dates: start: 201601
  5. ERLOTINIB [Suspect]
     Active Substance: ERLOTINIB
     Route: 048
     Dates: start: 20160203
  6. IRESSA [Concomitant]
     Active Substance: GEFITINIB
     Indication: PRODUCT USED FOR UNKNOWN INDICATION
     Dosage: UNK UNK, UNKNOWN FREQ.
     Route: 065
  7. ERLOTINIB [Suspect]
     Active Substance: ERLOTINIB
     Route: 048
     Dates: start: 20160203, end: 20160222
  8. PEPCID [Concomitant]
     Active Substance: FAMOTIDINE
     Indication: PRODUCT USED FOR UNKNOWN INDICATION
     Route: 065
  9. ERLOTINIB [Suspect]
     Active Substance: ERLOTINIB
     Route: 048
     Dates: start: 201601
  10. ERLOTINIB [Suspect]
     Active Substance: ERLOTINIB
     Route: 048
     Dates: start: 20160902
  11. ERLOTINIB [Suspect]
     Active Substance: ERLOTINIB
     Dosage: 50 MG FROM MONDAY TO FRIDAY AND 100 MG (4 TABLETS OF 25 MG) ON SATURDAY AND SUNDAY
     Route: 048
     Dates: start: 20160910, end: 20160914
  12. ERLOTINIB [Suspect]
     Active Substance: ERLOTINIB
     Indication: LUNG NEOPLASM MALIGNANT
     Route: 048
     Dates: start: 2012
  13. OXYCODONE W/PARACETAMOL [Concomitant]
     Active Substance: ACETAMINOPHEN\OXYCODONE HYDROCHLORIDE
     Indication: PRODUCT USED FOR UNKNOWN INDICATION
     Dosage: 5-325 MG, UNKNOWN FREQ.
     Route: 065
  14. LEVOFLOXACIN. [Concomitant]
     Active Substance: LEVOFLOXACIN
     Indication: PRODUCT USED FOR UNKNOWN INDICATION
     Dosage: UNK UNK, UNKNOWN FREQ.
     Route: 065

REACTIONS (22)
  - Metastases to meninges [Not Recovered/Not Resolved]
  - Pyrexia [Not Recovered/Not Resolved]
  - Pain [Not Recovered/Not Resolved]
  - Dry skin [Recovered/Resolved]
  - Nausea [Not Recovered/Not Resolved]
  - Death [Fatal]
  - Mass [Recovered/Resolved]
  - Pruritus [Recovered/Resolved]
  - Hypoaesthesia [Not Recovered/Not Resolved]
  - Wound [Unknown]
  - Abdominal discomfort [Not Recovered/Not Resolved]
  - Confusional state [Not Recovered/Not Resolved]
  - Rash [Recovered/Resolved]
  - Amnesia [Not Recovered/Not Resolved]
  - Skin exfoliation [Unknown]
  - Diarrhoea [Not Recovered/Not Resolved]
  - Drug ineffective [Unknown]
  - Hepatic enzyme increased [Not Recovered/Not Resolved]
  - Infected skin ulcer [Not Recovered/Not Resolved]
  - Peripheral coldness [Not Recovered/Not Resolved]
  - Depression [Not Recovered/Not Resolved]
  - Rash [Not Recovered/Not Resolved]

NARRATIVE: CASE EVENT DATE: 20160203
